FAERS Safety Report 15984951 (Version 1)
Quarter: 2019Q1

REPORT INFORMATION
  Report Type: Spontaneous
  Country: US (occurrence: US)
  Receive Date: 20190220
  Receipt Date: 20190220
  Transmission Date: 20190418
  Serious: No
  Sender: FDA-Public Use
  Company Number: US-BRISTOL-MYERS SQUIBB COMPANY-BMS-2019-016593

PATIENT
  Sex: Female
  Weight: 74.84 kg

DRUGS (1)
  1. OPDIVO [Suspect]
     Active Substance: NIVOLUMAB
     Indication: LUNG CARCINOMA CELL TYPE UNSPECIFIED STAGE IV
     Dosage: UNAVAILABLE
     Route: 042

REACTIONS (8)
  - Anxiety [Unknown]
  - Fall [Unknown]
  - Abdominal distension [Unknown]
  - Weight increased [Unknown]
  - Gait disturbance [Unknown]
  - Bowel movement irregularity [Unknown]
  - Depression [Unknown]
  - Headache [Unknown]
